FAERS Safety Report 18565294 (Version 1)
Quarter: 2020Q4

REPORT INFORMATION
  Report Type: Report from Study
  Country: NL (occurrence: NL)
  Receive Date: 20201201
  Receipt Date: 20201201
  Transmission Date: 20210114
  Serious: Yes (Hospitalization)
  Sender: FDA-Public Use
  Company Number: NL-BAXTER-2020BAX024044

PATIENT
  Age: 58 Year
  Sex: Female

DRUGS (22)
  1. VINCRISTINE MAYNE [Suspect]
     Active Substance: VINCRISTINE
     Indication: PRODUCT USED FOR UNKNOWN INDICATION
     Dosage: VINCRISTINE INJECTION FLUID 1MG/ML / VINCRISTINE MAYNE INJECTION FLUID 1 MG/ML FL 2ML ONCO-TAIN
     Route: 065
  2. DICLOFENAC SODIUM. [Concomitant]
     Active Substance: DICLOFENAC SODIUM
     Indication: PRODUCT USED FOR UNKNOWN INDICATION
     Dosage: DICLOFENAC SODIUM TABLET EC 50 MG / DICLOFENAC SODIUM A TABLET GASTRO-RESISTANT 50 MG
     Route: 065
     Dates: start: 20050824
  3. CYCLOPHOSPHAMIDE. [Concomitant]
     Active Substance: CYCLOPHOSPHAMIDE
     Indication: PRODUCT USED FOR UNKNOWN INDICATION
     Dosage: CYCLOPHOSPHAMIDE INJECTION POWDER 1000 MG / ENDOXAN INJECTION POWDER VIAL 1000 MG
     Route: 065
     Dates: start: 20050705
  4. GRANISETRON [Concomitant]
     Active Substance: GRANISETRON
     Indication: PRODUCT USED FOR UNKNOWN INDICATION
     Dosage: GRANISETRON TABLET 1MG / KYTRIL TABLET 1 MG
     Route: 065
     Dates: start: 20050630
  5. DEXTRAN [Concomitant]
     Active Substance: DEXTRAN
     Indication: PRODUCT USED FOR UNKNOWN INDICATION
     Dosage: DEXTRAN 70/HYPROMELLOSE EYE DROPS 1/3MG/ML/DURATEARS EYE DROPS VIAL 15 ML
     Route: 065
     Dates: start: 20050902
  6. VINCRISTINE [Concomitant]
     Active Substance: VINCRISTINE
     Indication: PRODUCT USED FOR UNKNOWN INDICATION
     Dosage: VINCRISTINE INJECTION FLUID 1MG/ML / VINCRISTINE SULFATE PCH INJECTION FLUID 1MG/ML VIAL 2ML
     Route: 065
     Dates: start: 20050705
  7. MICONAZOLE. [Concomitant]
     Active Substance: MICONAZOLE
     Indication: PRODUCT USED FOR UNKNOWN INDICATION
     Dosage: MICONAZOLE CREAM 20MG/G / MICONAZOLE NITRATE A HYDROPHILIC CREAM 20MG/G
     Route: 065
     Dates: start: 20050815
  8. TRAMADOL. [Concomitant]
     Active Substance: TRAMADOL
     Indication: PRODUCT USED FOR UNKNOWN INDICATION
     Dosage: TRAMADOL CAPSULE 50MG / TRAMADOL HCL CAPSULE 50 MG
     Route: 065
     Dates: start: 20050902
  9. NYSTATIN. [Concomitant]
     Active Substance: NYSTATIN
     Indication: PRODUCT USED FOR UNKNOWN INDICATION
     Dosage: NYSTATIN SUSP ORAL 100.000E/ML / NYSTATIN LABAZ SUSPENSION 100.000E/ML
     Route: 065
     Dates: start: 20050809
  10. CYCLOPHOSPHAMIDE. [Concomitant]
     Active Substance: CYCLOPHOSPHAMIDE
  11. MABTHERA [Suspect]
     Active Substance: RITUXIMAB
     Indication: PRODUCT USED FOR UNKNOWN INDICATION
     Dosage: RITUXIMAB INFUSION SOLUTION CONC 10MG/ML / MABTHERA INFUSION FLUID CONCENTRATE 10 MG/ML VIAL 50 ML
     Route: 065
  12. METHYLCELLULOSE THEA [Concomitant]
     Indication: PRODUCT USED FOR UNKNOWN INDICATION
     Dosage: METHYLCELLULOSE EYE DROPS 5MG/ML / METHYLCELLULOSE THEA EYE DROPS 0.5% VIAL 10
     Route: 065
     Dates: start: 20050804
  13. DARBEPOETIN ALFA [Concomitant]
     Active Substance: DARBEPOETIN ALFA
     Indication: PRODUCT USED FOR UNKNOWN INDICATION
     Dosage: DARBEPOETIN ALFA INJECTION FLUID 500UG/ML / ARANESP 500 INJECTION FLUID 500MCG/ML DISPOSABLE SYRINGE
     Route: 065
     Dates: start: 20050819
  14. DOXIL [Suspect]
     Active Substance: DOXORUBICIN HYDROCHLORIDE
     Indication: PRODUCT USED FOR UNKNOWN INDICATION
     Dosage: DOXORUBICIN INJECTION FLUID 2MG/ML / DOXORUBICIN HCL EURO INFUSION FLUID CONC 2MG/ML 100 ML
     Route: 065
  15. ENDOXAN BAXTER [Suspect]
     Active Substance: CYCLOPHOSPHAMIDE
     Indication: PRODUCT USED FOR UNKNOWN INDICATION
     Dosage: CYCLOPHOSPHAMIDE INJECTION POWDER 1000MG / ENDOXAN INJECTION POWDER VIAL 1000 MG
     Route: 065
  16. PREDNISOLONE. [Concomitant]
     Active Substance: PREDNISOLONE
     Indication: PRODUCT USED FOR UNKNOWN INDICATION
     Dosage: PREDNISOLONE TABLET 20 MG / PREDNISOLONE AUROBINDO TABLET 20 MG
     Route: 065
     Dates: start: 20050630, end: 20050715
  17. METOCLOPRAMIDE. [Concomitant]
     Active Substance: METOCLOPRAMIDE
     Indication: PRODUCT USED FOR UNKNOWN INDICATION
     Dosage: METOCLOPRAMIDE TABLET 10MG / METOCLOPRAMIDE HCL AUROBINDO TABLET 10MG
     Route: 065
     Dates: start: 20050630
  18. LIDOCAINE. [Concomitant]
     Active Substance: LIDOCAINE
     Indication: PRODUCT USED FOR UNKNOWN INDICATION
     Dosage: LIDOCAINE DRINK 20MG/ML (HCL) / XYLOCAINE VISCOUS 20MG/ML DRINK
     Route: 065
     Dates: start: 20050824
  19. PANTOPRAZOLE [Concomitant]
     Active Substance: PANTOPRAZOLE
     Indication: PRODUCT USED FOR UNKNOWN INDICATION
     Dosage: PANTOPRAZOLE TABLET GASTRO-RESISTANT 40MG / PANTOZOLE TABLET GASTRO-RESISTANT 40 MG
     Route: 065
     Dates: start: 20050902
  20. MABTHERA [Concomitant]
     Active Substance: RITUXIMAB
     Indication: PRODUCT USED FOR UNKNOWN INDICATION
     Dosage: RITUXIMAB INFUSION SOLUTION CONC 10MG/ML / MABTHERA INFUSION FLUID CONCENTRATE 10MG/ML VIAL 50 ML
     Route: 065
     Dates: start: 20050705
  21. MAGNESIUM OXIDE. [Concomitant]
     Active Substance: MAGNESIUM OXIDE
     Indication: PRODUCT USED FOR UNKNOWN INDICATION
     Dosage: MAGNESIUM OXIDE CHEWABLE TABLET 500MG / MAGNESIUM OXIDE RP CHEWABLE TABLET 500MG
     Route: 065
     Dates: start: 20050630
  22. DOXORUBICIN [Concomitant]
     Active Substance: DOXORUBICIN
     Indication: PRODUCT USED FOR UNKNOWN INDICATION
     Dosage: DOXORUBICIN INJECTION FLUID 2MG/ML / DOXORUBICIN INJECTION FLUID 2MG/ML VIAL 100ML
     Route: 065
     Dates: start: 20050705

REACTIONS (2)
  - Liver disorder [Recovered/Resolved with Sequelae]
  - Pneumonia pseudomonal [Recovered/Resolved with Sequelae]
